FAERS Safety Report 18911622 (Version 2)
Quarter: 2021Q1

REPORT INFORMATION
  Report Type: Spontaneous
  Country: HR (occurrence: HR)
  Receive Date: 20210218
  Receipt Date: 20210303
  Transmission Date: 20210420
  Serious: Yes (Hospitalization, Other)
  Sender: FDA-Public Use
  Company Number: HR-BAYER-2021-070731

PATIENT
  Age: 85 Year
  Sex: Female

DRUGS (1)
  1. LORATADINE. [Suspect]
     Active Substance: LORATADINE
     Indication: PRURITUS
     Dosage: UNK

REACTIONS (4)
  - Electrocardiogram QT prolonged [Recovered/Resolved]
  - Pruritus [None]
  - Off label use [None]
  - Product use in unapproved indication [None]
